FAERS Safety Report 6683388-0 (Version None)
Quarter: 2010Q2

REPORT INFORMATION
  Report Type: 
  Country: None (occurrence: None)
  Receive Date: 20100415
  Receipt Date: 20100406
  Transmission Date: 20101027
  Serious: Yes (Death, Other)
  Sender: FDA-Public Use
  Company Number: US-BAXTER-2010BH007922

PATIENT
  Sex: Male

DRUGS (1)
  1. DIANEAL [Suspect]
     Indication: PERITONEAL DIALYSIS
     Route: 033
     Dates: end: 20100328

REACTIONS (4)
  - DYSPNOEA [None]
  - LUNG NEOPLASM MALIGNANT [None]
  - METASTATIC NEOPLASM [None]
  - PERITONITIS [None]
